FAERS Safety Report 13765791 (Version 1)
Quarter: 2017Q3

REPORT INFORMATION
  Report Type: Spontaneous
  Country: NL (occurrence: NL)
  Receive Date: 20170718
  Receipt Date: 20170718
  Transmission Date: 20171127
  Serious: Yes (Other)
  Sender: FDA-Public Use
  Company Number: NL-TEVA-759597ROM

PATIENT
  Age: 66 Year
  Sex: Female

DRUGS (1)
  1. SALBUTAMOL 400 CYCLOCAPS, INHALATION POWDER (IN CAPSULES) 400 MICROGRA [Suspect]
     Active Substance: ALBUTEROL
     Indication: CHEST DISCOMFORT
     Dates: start: 20071022

REACTIONS (4)
  - Cough [Unknown]
  - Foreign body aspiration [Unknown]
  - Product use issue [Unknown]
  - Sputum abnormal [Unknown]

NARRATIVE: CASE EVENT DATE: 20170317
